FAERS Safety Report 25385842 (Version 1)
Quarter: 2025Q2

REPORT INFORMATION
  Report Type: Spontaneous
  Country: NL (occurrence: NL)
  Receive Date: 20250602
  Receipt Date: 20250602
  Transmission Date: 20250717
  Serious: Yes (Death, Life-Threatening, Hospitalization, Other)
  Sender: Haleon PLC
  Company Number: None

PATIENT
  Age: 53 Year
  Sex: Female

DRUGS (4)
  1. IBUPROFEN [Suspect]
     Active Substance: IBUPROFEN
     Indication: Psoriasis
  2. METHOTREXATE [Suspect]
     Active Substance: METHOTREXATE
     Indication: Psoriasis
  3. CLOBETASOL [Concomitant]
     Active Substance: CLOBETASOL
     Indication: Psoriasis
  4. FLUCLOXACILLIN [Suspect]
     Active Substance: FLUCLOXACILLIN
     Indication: Psoriasis

REACTIONS (8)
  - Myelosuppression [Fatal]
  - Epidermal necrosis [Fatal]
  - Hepatic failure [Fatal]
  - Toxic shock syndrome [Fatal]
  - Streptococcal infection [Fatal]
  - Shock [Fatal]
  - Intentional product use issue [Fatal]
  - Renal failure [Fatal]
